FAERS Safety Report 5821204-7 (Version None)
Quarter: 2008Q3

REPORT INFORMATION
  Report Type: 
  Country: None (occurrence: None)
  Receive Date: 20080718
  Receipt Date: 20080718
  Transmission Date: 20090109
  Serious: No
  Sender: FDA-Public Use
  Company Number: None

PATIENT
  Age: 57 Year
  Sex: Male
  Weight: 88.905 kg

DRUGS (4)
  1. CIPROFLOXACIN [Suspect]
     Indication: DIVERTICULITIS
     Dosage: 500 MG BID FOR 10 DAYS PO
     Route: 048
     Dates: start: 20050214, end: 20080522
  2. HYZAAR [Concomitant]
  3. CIPRO [Concomitant]
  4. METRANIDAZOLE [Concomitant]

REACTIONS (2)
  - DIVERTICULITIS [None]
  - TENDON RUPTURE [None]
